FAERS Safety Report 7257588-5 (Version None)
Quarter: 2011Q1

REPORT INFORMATION
  Report Type: 
  Country: None (occurrence: None)
  Receive Date: 20110129
  Receipt Date: 20100603
  Transmission Date: 20110831
  Serious: Yes (Hospitalization, Other)
  Sender: FDA-Public Use
  Company Number: US-ABBOTT-10P-163-0649286-00

PATIENT
  Sex: Female
  Weight: 61.744 kg

DRUGS (6)
  1. HUMIRA [Suspect]
     Indication: PSORIATIC ARTHROPATHY
     Route: 058
     Dates: start: 20080801, end: 20100225
  2. HUMIRA [Suspect]
     Indication: PSORIASIS
  3. SULFASALAZINE [Concomitant]
     Route: 048
  4. VOLTAREN [Concomitant]
     Route: 048
  5. VOLTAREN [Concomitant]
     Indication: PRODUCT USED FOR UNKNOWN INDICATION
     Route: 058
     Dates: start: 20100301
  6. SULFASALAZINE [Concomitant]
     Indication: PRODUCT USED FOR UNKNOWN INDICATION
     Route: 048
     Dates: start: 20100301

REACTIONS (11)
  - RIB FRACTURE [None]
  - BENIGN LYMPH NODE NEOPLASM [None]
  - BACTERIAL INFECTION [None]
  - ABASIA [None]
  - PNEUMONIA [None]
  - OEDEMA PERIPHERAL [None]
  - ERYTHEMA [None]
  - FALL [None]
  - DYSPNOEA [None]
  - WEIGHT INCREASED [None]
  - LYMPHOMA [None]
